FAERS Safety Report 25494642 (Version 1)
Quarter: 2025Q2

REPORT INFORMATION
  Report Type: Report from Study
  Country: CA (occurrence: CA)
  Receive Date: 20250630
  Receipt Date: 20250630
  Transmission Date: 20250716
  Serious: Yes (Hospitalization, Other)
  Sender: ASTELLAS
  Company Number: CA-SEATTLE GENETICS-2022SGN10599

PATIENT
  Age: 77 Year
  Sex: Male
  Weight: 61 kg

DRUGS (9)
  1. ENFORTUMAB VEDOTIN-EJFV [Suspect]
     Active Substance: ENFORTUMAB VEDOTIN-EJFV
     Indication: Transitional cell carcinoma
     Route: 065
  2. ENFORTUMAB VEDOTIN-EJFV [Suspect]
     Active Substance: ENFORTUMAB VEDOTIN-EJFV
     Route: 065
  3. ENFORTUMAB VEDOTIN-EJFV [Suspect]
     Active Substance: ENFORTUMAB VEDOTIN-EJFV
     Route: 065
  4. ENFORTUMAB VEDOTIN-EJFV [Suspect]
     Active Substance: ENFORTUMAB VEDOTIN-EJFV
     Route: 065
  5. ENFORTUMAB VEDOTIN-EJFV [Suspect]
     Active Substance: ENFORTUMAB VEDOTIN-EJFV
     Route: 065
  6. ENFORTUMAB VEDOTIN-EJFV [Suspect]
     Active Substance: ENFORTUMAB VEDOTIN-EJFV
     Route: 065
  7. ENFORTUMAB VEDOTIN-EJFV [Suspect]
     Active Substance: ENFORTUMAB VEDOTIN-EJFV
     Route: 065
  8. ENFORTUMAB VEDOTIN-EJFV [Suspect]
     Active Substance: ENFORTUMAB VEDOTIN-EJFV
     Route: 065
  9. ENFORTUMAB VEDOTIN-EJFV [Suspect]
     Active Substance: ENFORTUMAB VEDOTIN-EJFV
     Route: 065

REACTIONS (45)
  - Dehydration [Unknown]
  - Neuropathy peripheral [Recovering/Resolving]
  - Urinary incontinence [Recovering/Resolving]
  - Inflammation [Recovering/Resolving]
  - Dry mouth [Recovering/Resolving]
  - Pain [Recovering/Resolving]
  - Discomfort [Recovering/Resolving]
  - Decreased activity [Recovering/Resolving]
  - Cognitive disorder [Recovering/Resolving]
  - Dyskinesia [Recovering/Resolving]
  - Defaecation urgency [Recovering/Resolving]
  - Muscle spasms [Recovering/Resolving]
  - Loss of personal independence in daily activities [Recovering/Resolving]
  - Taste disorder [Recovering/Resolving]
  - Malaise [Recovering/Resolving]
  - Hepatic enzyme increased [Recovering/Resolving]
  - Blood copper increased [Unknown]
  - Abdominal rigidity [Unknown]
  - Dizziness [Unknown]
  - Fall [Unknown]
  - Reflexes abnormal [Unknown]
  - Head injury [Unknown]
  - Urine output increased [Unknown]
  - Abdominal pain [Recovering/Resolving]
  - Myalgia [Recovering/Resolving]
  - Muscular weakness [Recovering/Resolving]
  - Gait disturbance [Recovering/Resolving]
  - Vision blurred [Recovering/Resolving]
  - Back pain [Recovering/Resolving]
  - Constipation [Not Recovered/Not Resolved]
  - Musculoskeletal pain [Recovering/Resolving]
  - Lacrimation increased [Recovering/Resolving]
  - Conjunctivitis [Recovering/Resolving]
  - Dry eye [Recovering/Resolving]
  - Infusion site extravasation [Recovering/Resolving]
  - Decreased appetite [Recovering/Resolving]
  - Vomiting [Recovering/Resolving]
  - Nausea [Recovering/Resolving]
  - Rash [Recovering/Resolving]
  - Anaemia [Recovering/Resolving]
  - Diarrhoea [Recovering/Resolving]
  - Fatigue [Recovering/Resolving]
  - Decreased appetite [Unknown]
  - Drug effect less than expected [Unknown]
  - Product use issue [Recovering/Resolving]

NARRATIVE: CASE EVENT DATE: 20230101
